FAERS Safety Report 7562982-9 (Version None)
Quarter: 2011Q2

REPORT INFORMATION
  Report Type: 
  Country: None (occurrence: None)
  Receive Date: 20110525
  Receipt Date: 20110322
  Transmission Date: 20111010
  Serious: No
  Sender: FDA-Public Use
  Company Number: 326475

PATIENT
  Age: 65 Year
  Sex: Male
  Weight: 108.8 kg

DRUGS (8)
  1. INSULIN ASPART [Concomitant]
  2. VICTOZA [Suspect]
     Indication: DIABETES MELLITUS
     Dosage: SUBCUTANEOUS
     Route: 058
  3. INSULIN GLARGINE [Concomitant]
  4. DESVENLAFAXINE [Concomitant]
  5. JANUMET [Concomitant]
  6. TESTIM [Suspect]
     Indication: BLOOD TESTOSTERONE DECREASED
     Dosage: 50 MG, QD, TRANSDERMAL
     Route: 062
  7. VICODIN [Suspect]
     Indication: POSTOPERATIVE ANALGESIA
     Dosage: MG, PRN
     Dates: start: 20100101
  8. CELECOXIB [Concomitant]

REACTIONS (6)
  - NAUSEA [None]
  - INSOMNIA [None]
  - NERVOUSNESS [None]
  - FEELING JITTERY [None]
  - ANXIETY [None]
  - ENERGY INCREASED [None]
